FAERS Safety Report 25581788 (Version 1)
Quarter: 2025Q3

REPORT INFORMATION
  Report Type: Spontaneous
  Country: US (occurrence: US)
  Receive Date: 20250719
  Receipt Date: 20250719
  Transmission Date: 20251021
  Serious: No
  Sender: SANOFI AVENTIS
  Company Number: US-SA-2025SA201909

PATIENT
  Sex: Male

DRUGS (8)
  1. DUPIXENT [Suspect]
     Active Substance: DUPILUMAB
     Indication: Asthma
     Route: 058
  2. CLONAZEPAM [Concomitant]
     Active Substance: CLONAZEPAM
  3. FINASTERIDE [Concomitant]
     Active Substance: FINASTERIDE
  4. MELOXICAM [Concomitant]
     Active Substance: MELOXICAM
  5. MONTELUKAST [Concomitant]
     Active Substance: MONTELUKAST
  6. ACETAMINOPHEN\OXYCODONE HYDROCHLORIDE [Concomitant]
     Active Substance: ACETAMINOPHEN\OXYCODONE HYDROCHLORIDE
  7. PRAVASTATIN [Concomitant]
     Active Substance: PRAVASTATIN
  8. TADALAFIL [Concomitant]
     Active Substance: TADALAFIL

REACTIONS (2)
  - Injury [Unknown]
  - Fall [Unknown]
